FAERS Safety Report 6349459-3 (Version None)
Quarter: 2009Q3

REPORT INFORMATION
  Report Type: 
  Country: None (occurrence: None)
  Receive Date: 20090911
  Receipt Date: 20090904
  Transmission Date: 20100115
  Serious: Yes (Hospitalization)
  Sender: FDA-Public Use
  Company Number: US-ABBOTT-09P-163-0595547-00

PATIENT
  Sex: Male
  Weight: 120.31 kg

DRUGS (18)
  1. NIASPAN [Suspect]
     Indication: HIGH DENSITY LIPOPROTEIN DECREASED
     Route: 048
     Dates: start: 20040101
  2. CRESTOR [Suspect]
     Indication: DRUG USE FOR UNKNOWN INDICATION
     Route: 048
  3. TOPROL-XL [Concomitant]
     Indication: CARDIAC DISORDER
     Route: 048
  4. TOPROL-XL [Concomitant]
     Indication: HYPERTENSION
  5. WARFARIN SODIUM [Concomitant]
     Indication: ATRIAL FIBRILLATION
     Route: 048
  6. PREVACID [Concomitant]
     Indication: DYSPEPSIA
     Route: 048
  7. XANAX [Concomitant]
     Indication: CARDIAC FLUTTER
     Route: 048
  8. LISINOPRIL [Concomitant]
     Indication: CORONARY ARTERY DISEASE
     Route: 048
  9. PANTOTHENIC ACID [Concomitant]
     Indication: SUPPLEMENTATION THERAPY
     Route: 048
  10. COQ10 [Concomitant]
     Indication: SUPPLEMENTATION THERAPY
     Route: 048
  11. CHROMIUM PICOLINATE [Concomitant]
     Indication: SUPPLEMENTATION THERAPY
     Route: 048
  12. L-CARNITINE [Concomitant]
     Indication: SUPPLEMENTATION THERAPY
     Route: 048
  13. SELENIUM [Concomitant]
     Indication: SUPPLEMENTATION THERAPY
     Route: 048
  14. COSCO MULTIVITAMIN SENIORS [Concomitant]
     Indication: VITAMIN SUPPLEMENTATION
     Route: 048
  15. CALCIUM MAGNESIUM [Concomitant]
     Indication: MINERAL SUPPLEMENTATION
     Dosage: 500/250
     Route: 048
  16. CALCIUM MAGNESIUM [Concomitant]
  17. ASCORBIC ACID [Concomitant]
     Indication: VITAMIN SUPPLEMENTATION
     Route: 048
  18. FISH OIL [Concomitant]
     Indication: MINERAL SUPPLEMENTATION

REACTIONS (3)
  - ATRIAL FIBRILLATION [None]
  - HIGH DENSITY LIPOPROTEIN DECREASED [None]
  - PARAESTHESIA [None]
